FAERS Safety Report 7913351-0 (Version None)
Quarter: 2011Q4

REPORT INFORMATION
  Report Type: 
  Country: None (occurrence: None)
  Receive Date: 20111114
  Receipt Date: 20111107
  Transmission Date: 20120403
  Serious: Yes (Other)
  Sender: FDA-Public Use
  Company Number: FR-BMSGILMSD-2011-0043272

PATIENT
  Sex: Male

DRUGS (4)
  1. TRUVADA [Concomitant]
     Indication: HIV INFECTION
     Dates: end: 20110601
  2. REYATAZ [Concomitant]
     Dates: end: 20110601
  3. ATRIPLA [Suspect]
     Indication: HIV INFECTION
     Dates: start: 20110601
  4. NORVIR [Concomitant]
     Dates: end: 20110601

REACTIONS (2)
  - DRUG LEVEL INCREASED [None]
  - DEPRESSION [None]
